FAERS Safety Report 11995806 (Version 2)
Quarter: 2016Q1

REPORT INFORMATION
  Report Type: Spontaneous
  Country: RU (occurrence: RU)
  Receive Date: 20160203
  Receipt Date: 20160310
  Transmission Date: 20160526
  Serious: Yes (Death)
  Sender: FDA-Public Use
  Company Number: RU-ASTRAZENECA-2016SE09497

PATIENT
  Age: 9 Month
  Sex: Male

DRUGS (1)
  1. PULMICORT TURBUHALER [Suspect]
     Active Substance: BUDESONIDE
     Indication: LARYNGEAL STENOSIS
     Dosage: 2 INHALATIONS
     Route: 055

REACTIONS (2)
  - Product use issue [Unknown]
  - Sepsis [Fatal]
